FAERS Safety Report 13939261 (Version 1)
Quarter: 2017Q3

REPORT INFORMATION
  Report Type: Spontaneous
  Country: US (occurrence: US)
  Receive Date: 20170906
  Receipt Date: 20170906
  Transmission Date: 20171127
  Serious: Yes (Death, Life-Threatening, Other)
  Sender: FDA-Public Use
  Company Number: US-LUPIN PHARMACEUTICALS INC.-2017-05072

PATIENT
  Age: 53 Year
  Sex: Male

DRUGS (2)
  1. METFORMIN [Suspect]
     Active Substance: METFORMIN HYDROCHLORIDE
     Indication: PRODUCT USED FOR UNKNOWN INDICATION
     Dosage: UNK
     Route: 065
  2. ATENOLOL. [Suspect]
     Active Substance: ATENOLOL
     Indication: PRODUCT USED FOR UNKNOWN INDICATION
     Dosage: UNK
     Route: 065

REACTIONS (11)
  - Hepatotoxicity [Fatal]
  - Myocardial ischaemia [Fatal]
  - Hypotension [Fatal]
  - Rhabdomyolysis [Fatal]
  - Metabolic acidosis [Fatal]
  - Electrocardiogram QRS complex prolonged [Fatal]
  - Hypertension [Fatal]
  - Anion gap increased [Fatal]
  - Electrocardiogram QT prolonged [Fatal]
  - Acute kidney injury [Fatal]
  - Toxicity to various agents [Fatal]
